FAERS Safety Report 7364258-1 (Version None)
Quarter: 2011Q1

REPORT INFORMATION
  Report Type: 
  Country: None (occurrence: None)
  Receive Date: 20110321
  Receipt Date: 20110311
  Transmission Date: 20110831
  Serious: Yes (Other)
  Sender: FDA-Public Use
  Company Number: A0918813A

PATIENT
  Sex: Female

DRUGS (9)
  1. METOPROLOL [Suspect]
  2. METFORMIN [Suspect]
  3. LIPITOR [Suspect]
     Indication: BLOOD CHOLESTEROL ABNORMAL
  4. ASPIRIN [Suspect]
  5. ACCUPRIL [Suspect]
     Indication: BLOOD PRESSURE ABNORMAL
     Route: 048
  6. LEVOTHYROXINE [Suspect]
     Indication: THYROID DISORDER
  7. AMITRIPTYLINE [Suspect]
  8. ZANTAC [Suspect]
  9. NO CONCURRENT MEDICATION [Concomitant]

REACTIONS (2)
  - CORONARY ARTERY OCCLUSION [None]
  - CHEST PAIN [None]
